FAERS Safety Report 14710042 (Version 4)
Quarter: 2023Q4

REPORT INFORMATION
  Report Type: Spontaneous
  Country: US (occurrence: None)
  Receive Date: 20180403
  Receipt Date: 20231027
  Transmission Date: 20240110
  Serious: Yes (Other)
  Sender: FDA-Public Use
  Company Number: 2018SE41203

PATIENT
  Age: 697 Month
  Sex: Male
  Weight: 105.2 kg

DRUGS (49)
  1. NEXIUM [Suspect]
     Active Substance: ESOMEPRAZOLE MAGNESIUM
     Route: 048
     Dates: start: 200801, end: 201312
  2. NEXIUM [Suspect]
     Active Substance: ESOMEPRAZOLE MAGNESIUM
     Route: 048
  3. NEXIUM 24HR [Suspect]
     Active Substance: ESOMEPRAZOLE MAGNESIUM
     Route: 048
     Dates: start: 200801, end: 201312
  4. NEXIUM 24HR [Suspect]
     Active Substance: ESOMEPRAZOLE MAGNESIUM
     Route: 048
  5. PRILOSEC [Suspect]
     Active Substance: OMEPRAZOLE MAGNESIUM
     Indication: Gastrooesophageal reflux disease
     Route: 048
     Dates: start: 200710, end: 201312
  6. PRILOSEC [Suspect]
     Active Substance: OMEPRAZOLE MAGNESIUM
     Indication: Gastrooesophageal reflux disease
     Route: 048
     Dates: start: 20071015, end: 20131231
  7. PRILOSEC [Suspect]
     Active Substance: OMEPRAZOLE MAGNESIUM
     Indication: Gastrooesophageal reflux disease
     Route: 048
  8. PRILOSEC OTC [Suspect]
     Active Substance: OMEPRAZOLE MAGNESIUM
     Route: 048
     Dates: start: 200801, end: 201312
  9. PRILOSEC OTC [Suspect]
     Active Substance: OMEPRAZOLE MAGNESIUM
     Route: 048
  10. DEXILANT [Suspect]
     Active Substance: DEXLANSOPRAZOLE
     Dates: start: 200801, end: 201312
  11. PREVACID [Suspect]
     Active Substance: LANSOPRAZOLE
     Dates: start: 200801, end: 201312
  12. PREVACID [Suspect]
     Active Substance: LANSOPRAZOLE
  13. PREVACID 24 HR [Suspect]
     Active Substance: LANSOPRAZOLE
     Dates: start: 200801, end: 201312
  14. PREVACID 24 HR [Suspect]
     Active Substance: LANSOPRAZOLE
  15. PROTONIX [Suspect]
     Active Substance: PANTOPRAZOLE SODIUM
     Indication: Gastrooesophageal reflux disease
     Dates: start: 200801, end: 201312
  16. PROTONIX [Suspect]
     Active Substance: PANTOPRAZOLE SODIUM
     Indication: Gastrooesophageal reflux disease
     Dates: start: 201601, end: 201612
  17. FLONASE [Concomitant]
     Active Substance: FLUTICASONE PROPIONATE
  18. ALLOPURINOL [Concomitant]
     Active Substance: ALLOPURINOL
  19. PEPCID [Concomitant]
     Active Substance: FAMOTIDINE
  20. NEURONTIN [Concomitant]
     Active Substance: GABAPENTIN
  21. HYDRALAZINE [Concomitant]
     Active Substance: HYDRALAZINE HYDROCHLORIDE
  22. COZAAR [Concomitant]
     Active Substance: LOSARTAN POTASSIUM
  23. ASPIRIN [Concomitant]
     Active Substance: ASPIRIN
  24. MELADOX [Concomitant]
  25. LOPRESSOR [Concomitant]
     Active Substance: METOPROLOL TARTRATE
  26. TYLENOL [Concomitant]
     Active Substance: ACETAMINOPHEN
  27. HEPARIN [Concomitant]
     Active Substance: HEPARIN SODIUM
  28. LASIX [Concomitant]
     Active Substance: FUROSEMIDE
  29. PRAVACHOL [Concomitant]
     Active Substance: PRAVASTATIN SODIUM
  30. WARFARIN [Concomitant]
     Active Substance: WARFARIN
  31. CLONIDINE [Concomitant]
     Active Substance: CLONIDINE
  32. AMOXICILLIN [Concomitant]
     Active Substance: AMOXICILLIN
  33. SIMVASTATIN [Concomitant]
     Active Substance: SIMVASTATIN
  34. FUROSEMIDE [Concomitant]
     Active Substance: FUROSEMIDE
  35. METOPROLOL TARTRATE [Concomitant]
     Active Substance: METOPROLOL TARTRATE
  36. ATORVASTATIN [Concomitant]
     Active Substance: ATORVASTATIN
  37. GABAPENTIN [Concomitant]
     Active Substance: GABAPENTIN
  38. LOSARTAN [Concomitant]
     Active Substance: LOSARTAN
  39. AMLODIPINE [Concomitant]
     Active Substance: AMLODIPINE BESYLATE
  40. LIPITOR [Concomitant]
     Active Substance: ATORVASTATIN CALCIUM
  41. ZANTAC [Concomitant]
     Active Substance: RANITIDINE HYDROCHLORIDE
  42. TOLAZAMIDE [Concomitant]
     Active Substance: TOLAZAMIDE
  43. ALLEGRA [Concomitant]
     Active Substance: FEXOFENADINE HYDROCHLORIDE
  44. VIAGRA [Concomitant]
     Active Substance: SILDENAFIL CITRATE
  45. NIFEDIPINE [Concomitant]
     Active Substance: NIFEDIPINE
  46. NOVOLOG [Concomitant]
     Active Substance: INSULIN ASPART
  47. AMMONIUM CHLORIDE\DEXTROMETHORPHAN\SODIUM CITRATE [Concomitant]
     Active Substance: AMMONIUM CHLORIDE\DEXTROMETHORPHAN\SODIUM CITRATE
  48. CYCLOPHOSPHAMIDE [Concomitant]
     Active Substance: CYCLOPHOSPHAMIDE
  49. GEMFIBROZIL [Concomitant]
     Active Substance: GEMFIBROZIL

REACTIONS (5)
  - Acute kidney injury [Not Recovered/Not Resolved]
  - Chronic kidney disease [Not Recovered/Not Resolved]
  - End stage renal disease [Not Recovered/Not Resolved]
  - Renal injury [Unknown]
  - Renal failure [Unknown]

NARRATIVE: CASE EVENT DATE: 20071201
